FAERS Safety Report 18722587 (Version 1)
Quarter: 2021Q1

REPORT INFORMATION
  Report Type: Spontaneous
  Country: US (occurrence: US)
  Receive Date: 20210111
  Receipt Date: 20210111
  Transmission Date: 20210419
  Serious: Yes (Other)
  Sender: FDA-Public Use
  Company Number: US-009507513-2101USA003654

PATIENT
  Sex: Female

DRUGS (2)
  1. FOSAMAX [Suspect]
     Active Substance: ALENDRONATE SODIUM
     Indication: OSTEOPOROSIS
     Dosage: DOSAGE FORM: NOT REPORTED; ?AS PRESCRIBED AND IN A FORESEEABLE MANNER?
     Route: 048
  2. FOSAMAX [Suspect]
     Active Substance: ALENDRONATE SODIUM
     Indication: OSTEOPOROSIS
     Dosage: DOSAGE FORM: TABLET; ?AS PRESCRIBED AND IN A FORESEEABLE MANNER?
     Route: 048

REACTIONS (2)
  - Incorrect product administration duration [Unknown]
  - Femur fracture [Unknown]
